FAERS Safety Report 15505007 (Version 1)
Quarter: 2018Q4

REPORT INFORMATION
  Report Type: Spontaneous
  Country: US (occurrence: US)
  Receive Date: 20181010
  Receipt Date: 20181010
  Transmission Date: 20190205
  Serious: Yes (Other)
  Sender: FDA-Public Use
  Company Number: None

PATIENT
  Age: 10 Year
  Sex: Male
  Weight: 36.9 kg

DRUGS (4)
  1. ABREVA [Suspect]
     Active Substance: DOCOSANOL
     Indication: ORAL HERPES
     Dosage: ?          QUANTITY:1 PUMP;OTHER FREQUENCY:5 TIMES A DAY;?
     Route: 061
     Dates: start: 20181009, end: 20181010
  2. MULTIVITAMIN [Concomitant]
     Active Substance: VITAMINS
  3. SINGULAIR [Concomitant]
     Active Substance: MONTELUKAST SODIUM
  4. PULMICORT TURBUHALER [Concomitant]
     Active Substance: BUDESONIDE

REACTIONS (8)
  - Pain [None]
  - Feeling abnormal [None]
  - Pruritus [None]
  - Blister [None]
  - Condition aggravated [None]
  - Stomatitis [None]
  - Mouth swelling [None]
  - Hypersensitivity [None]

NARRATIVE: CASE EVENT DATE: 20181010
